FAERS Safety Report 4449257-1 (Version None)
Quarter: 2004Q3

REPORT INFORMATION
  Report Type: 
  Country: None (occurrence: None)
  Receive Date: 20040910
  Receipt Date: 20040903
  Transmission Date: 20050211
  Serious: Yes (Other)
  Sender: FDA-Public Use
  Company Number: GBWYE019707SEP04

PATIENT
  Age: 37 Year
  Sex: Female

DRUGS (3)
  1. EFFEXOR [Suspect]
     Indication: DEPRESSION
     Dosage: 37.5MG DAILY
     Route: 048
     Dates: start: 20040818, end: 20040818
  2. SALBUTAMOL (SALBUTAMOL) [Concomitant]
  3. BECLOMETHASONE DIPROPIONATE (BECLOMETASONE DIPROPIONATE) [Concomitant]

REACTIONS (8)
  - ABDOMINAL PAIN [None]
  - ANXIETY [None]
  - CHILLS [None]
  - FAECES DISCOLOURED [None]
  - FATIGUE [None]
  - HYPERHIDROSIS [None]
  - MYDRIASIS [None]
  - RESTLESSNESS [None]
